FAERS Safety Report 4551382-1 (Version None)
Quarter: 2005Q1

REPORT INFORMATION
  Report Type: 
  Country: None (occurrence: None)
  Receive Date: 20050111
  Receipt Date: 20050111
  Transmission Date: 20050727
  Serious: Yes (Hospitalization)
  Sender: FDA-Public Use
  Company Number: None

PATIENT
  Sex: Male
  Weight: 91.2 kg

DRUGS (7)
  1. ROSIGLITAZONE   4MG [Suspect]
     Indication: DIABETES MELLITUS
     Dosage: 2MG   EVERY AM   ORAL
     Route: 048
     Dates: start: 20041012, end: 20041118
  2. AMIODARONE HCL [Concomitant]
  3. FELODIPINE [Concomitant]
  4. GATIFLOXACIN [Concomitant]
  5. GLIPIZIDE [Concomitant]
  6. SIMVASTATIN [Concomitant]
  7. COUMADIN [Concomitant]

REACTIONS (5)
  - CONDITION AGGRAVATED [None]
  - FLUID RETENTION [None]
  - OEDEMA PERIPHERAL [None]
  - PNEUMONIA [None]
  - PULMONARY CONGESTION [None]
